FAERS Safety Report 11044878 (Version 1)
Quarter: 2015Q2

REPORT INFORMATION
  Report Type: Spontaneous
  Country: TR (occurrence: TR)
  Receive Date: 20150417
  Receipt Date: 20150417
  Transmission Date: 20150821
  Serious: Yes (Other)
  Sender: FDA-Public Use
  Company Number: PHHY2015TR044656

PATIENT

DRUGS (2)
  1. PREDNISOLONE. [Suspect]
     Active Substance: PREDNISOLONE
     Dosage: 30 MG, QD
     Route: 065
  2. PREDNISOLONE. [Suspect]
     Active Substance: PREDNISOLONE
     Indication: UVEITIS
     Dosage: 60 MG, QD
     Route: 065

REACTIONS (6)
  - Insomnia [Recovered/Resolved]
  - Drug withdrawal syndrome [Unknown]
  - Logorrhoea [Recovered/Resolved]
  - Irritability [Recovered/Resolved]
  - Sexual activity increased [Recovered/Resolved]
  - Mania [Recovered/Resolved]
